FAERS Safety Report 9786821 (Version 3)
Quarter: 2014Q1

REPORT INFORMATION
  Report Type: Report from Study
  Country: US (occurrence: US)
  Receive Date: 20131227
  Receipt Date: 20140219
  Transmission Date: 20141002
  Serious: Yes (Hospitalization)
  Sender: FDA-Public Use
  Company Number: US-ABBVIE-13P-163-1180990-00

PATIENT
  Age: 61 Year
  Sex: Female
  Weight: 81.72 kg

DRUGS (14)
  1. HUMIRA [Suspect]
     Indication: CROHN^S DISEASE
     Dates: start: 2012, end: 2012
  2. HUMIRA [Suspect]
     Dates: start: 2012, end: 2012
  3. HUMIRA [Suspect]
     Dates: start: 2012
  4. BACLOFEN [Concomitant]
     Indication: MUSCLE SPASMS
  5. DICYCLOMINE [Concomitant]
     Indication: CROHN^S DISEASE
  6. MELOXICAM [Concomitant]
     Indication: FIBROMYALGIA
  7. NEXIUM [Concomitant]
     Indication: GASTROOESOPHAGEAL REFLUX DISEASE
  8. MEDROPROGESTERONE [Concomitant]
     Indication: HORMONE REPLACEMENT THERAPY
  9. ESTRADIOL [Concomitant]
     Indication: HORMONE REPLACEMENT THERAPY
  10. SIMVASTATIN [Concomitant]
     Indication: BLOOD CHOLESTEROL
  11. ZOLOFT [Concomitant]
     Indication: DEPRESSION
  12. ROPINIROLE [Concomitant]
     Indication: PRODUCT USED FOR UNKNOWN INDICATION
  13. VITAMIN D [Concomitant]
     Indication: VITAMIN SUPPLEMENTATION
  14. VITAMIN B12 [Concomitant]
     Indication: VITAMIN SUPPLEMENTATION

REACTIONS (8)
  - Spinal column stenosis [Recovered/Resolved]
  - Injection site pain [Not Recovered/Not Resolved]
  - Device malfunction [Not Recovered/Not Resolved]
  - Weight increased [Not Recovered/Not Resolved]
  - Back pain [Recovered/Resolved]
  - Haematochezia [Recovered/Resolved]
  - Device malfunction [Unknown]
  - Haemorrhoids [Unknown]
